FAERS Safety Report 19802873 (Version 1)
Quarter: 2021Q3

REPORT INFORMATION
  Report Type: Spontaneous
  Country: US (occurrence: US)
  Receive Date: 20210907
  Receipt Date: 20210907
  Transmission Date: 20211014
  Serious: No
  Sender: FDA-Public Use
  Company Number: None

PATIENT
  Age: 71 Year
  Sex: Male
  Weight: 79 kg

DRUGS (2)
  1. CASIRIVIMAB (INV?CASIRIVIMAB 120MG/ML INJ,SOLN) [Suspect]
     Active Substance: CASIRIVIMAB
     Route: 042
     Dates: start: 20210830, end: 20210830
  2. IMDEVIMAB (INV?IMDEVIMAB 120MG/ML INJ,SOLN) [Suspect]
     Active Substance: IMDEVIMAB
     Route: 042
     Dates: start: 20210830, end: 20210830

REACTIONS (7)
  - Dyspnoea [None]
  - Wheezing [None]
  - Dyspnoea exertional [None]
  - Cough [None]
  - Oxygen saturation decreased [None]
  - COVID-19 pneumonia [None]
  - Infusion related reaction [None]

NARRATIVE: CASE EVENT DATE: 20210830
